FAERS Safety Report 8985259 (Version 1)
Quarter: 2012Q4

REPORT INFORMATION
  Report Type: 
  Country: US (occurrence: US)
  Receive Date: 20121226
  Receipt Date: 20121226
  Transmission Date: 20130627
  Serious: No
  Sender: FDA-Public Use
  Company Number: US-BAYER-2012-134741

PATIENT
  Age: 70 Year
  Sex: Male
  Weight: 90.7 kg

DRUGS (2)
  1. ALEVE CAPLET/TABLET,MIDOL EXTENDED RELIEF CAPLET [Suspect]
     Dosage: 4 DF, BID
     Route: 048
     Dates: start: 20121109, end: 20121215
  2. ANTIHYPERTENSIVES [Concomitant]

REACTIONS (4)
  - Overdose [None]
  - Gastrooesophageal reflux disease [Not Recovered/Not Resolved]
  - Incorrect drug administration duration [None]
  - Drug ineffective [None]
